FAERS Safety Report 6672844-7 (Version None)
Quarter: 2010Q2

REPORT INFORMATION
  Report Type: 
  Country: None (occurrence: None)
  Receive Date: 20100408
  Receipt Date: 20100326
  Transmission Date: 20101027
  Serious: Yes (Hospitalization, Other)
  Sender: FDA-Public Use
  Company Number: PHEH2010US01281

PATIENT
  Sex: Female

DRUGS (19)
  1. RECLAST [Suspect]
     Indication: OSTEOPOROSIS
     Dosage: 5 MG
     Dates: start: 20091203
  2. METFORMIN [Suspect]
     Dosage: 1000 MG, BID
  3. LASIX [Suspect]
     Dosage: 40 DAILY
  4. DIOVAN [Concomitant]
  5. SPIRONOLACTONE [Concomitant]
     Dosage: 25 MG, QD
  6. GLIPIZIDE [Concomitant]
     Dosage: 20 IN MORNING AND 10 AT NIGHT
  7. MULTIVIT [Concomitant]
     Dosage: 1 DAILY
  8. CALCIUM [Concomitant]
     Dosage: 600 MG, TID
  9. DARVON [Concomitant]
     Dosage: 160 DAILY
  10. EVISTA [Concomitant]
     Dosage: 60 DAILY
  11. TERAZOSIN HCL [Concomitant]
     Dosage: 10 DAILY
  12. ASPIRIN [Concomitant]
     Dosage: 81 DAILY
  13. DESIPRAMINE HCL [Concomitant]
     Dosage: 25 DAILY
  14. VITAMIN D [Concomitant]
     Dosage: 50,000 UNITS DAILY
  15. POTASSIUM CHLORIDE [Concomitant]
     Dosage: 20 MEQ, QID
  16. POLYCARBOPHIL [Concomitant]
     Dosage: AS NEEDED
  17. TYLENOL-500 [Concomitant]
     Dosage: AS NEEDED
  18. HYTRIN [Concomitant]
  19. HYDROCODONE BITARTRATE [Concomitant]

REACTIONS (48)
  - ABASIA [None]
  - ABDOMINAL DISTENSION [None]
  - ARTHRALGIA [None]
  - ASTHENIA [None]
  - BLOOD CALCIUM DECREASED [None]
  - BLOOD CREATINE PHOSPHOKINASE INCREASED [None]
  - BLOOD CREATININE INCREASED [None]
  - BLOOD GLUCOSE INCREASED [None]
  - BLOOD PHOSPHORUS DECREASED [None]
  - BRAIN NATRIURETIC PEPTIDE INCREASED [None]
  - CARDIAC FAILURE CONGESTIVE [None]
  - CARPAL TUNNEL SYNDROME [None]
  - CONFUSIONAL STATE [None]
  - CONSTIPATION [None]
  - CREPITATIONS [None]
  - DEHYDRATION [None]
  - DELIRIUM [None]
  - EOSINOPHIL PERCENTAGE INCREASED [None]
  - FALL [None]
  - FLATULENCE [None]
  - HAEMOGLOBIN DECREASED [None]
  - HYPERHIDROSIS [None]
  - HYPERKALAEMIA [None]
  - HYPOALBUMINAEMIA [None]
  - HYPONATRAEMIA [None]
  - HYPOXIA [None]
  - INFLUENZA LIKE ILLNESS [None]
  - INSOMNIA [None]
  - LACTIC ACIDOSIS [None]
  - LETHARGY [None]
  - MENTAL DISORDER DUE TO A GENERAL MEDICAL CONDITION [None]
  - MONOCYTE PERCENTAGE INCREASED [None]
  - MYALGIA [None]
  - MYOGLOBIN BLOOD INCREASED [None]
  - NAUSEA [None]
  - NEUROPATHY PERIPHERAL [None]
  - NEUTROPHIL PERCENTAGE INCREASED [None]
  - OEDEMA PERIPHERAL [None]
  - PAIN IN EXTREMITY [None]
  - PERNICIOUS ANAEMIA [None]
  - PYREXIA [None]
  - RENAL FAILURE [None]
  - SOMNOLENCE [None]
  - TROPONIN INCREASED [None]
  - URINARY RETENTION [None]
  - VITAMIN B12 DEFICIENCY [None]
  - VOMITING [None]
  - WHITE BLOOD CELL COUNT INCREASED [None]
